FAERS Safety Report 9546532 (Version 2)
Quarter: 2013Q4

REPORT INFORMATION
  Report Type: Spontaneous
  Country: US (occurrence: US)
  Receive Date: 20130923
  Receipt Date: 20131011
  Transmission Date: 20140711
  Serious: Yes (Disabling)
  Sender: FDA-Public Use
  Company Number: US-009507513-1309USA006678

PATIENT
  Age: 26 Year
  Sex: Male

DRUGS (5)
  1. PROPECIA [Suspect]
     Indication: ALOPECIA
     Dosage: 0.5 MG, QD
     Route: 048
     Dates: start: 201010, end: 2010
  2. PROPECIA [Suspect]
     Indication: ANDROGENETIC ALOPECIA
     Dosage: 0.5 MG, QD
     Route: 048
     Dates: start: 201012, end: 20101230
  3. PROPECIA [Suspect]
     Dosage: 1 MG, QD
     Route: 048
     Dates: start: 20100910
  4. NAPROXEN [Concomitant]
  5. ROBINUL [Concomitant]
     Indication: HYPERHIDROSIS
     Dosage: 2 MG, 4-6
     Route: 048
     Dates: start: 20091202

REACTIONS (20)
  - Cognitive disorder [Not Recovered/Not Resolved]
  - Hypothyroidism [Unknown]
  - Prostatitis [Not Recovered/Not Resolved]
  - Hyperhidrosis [Unknown]
  - Sexual dysfunction [Unknown]
  - Hyperhidrosis [Not Recovered/Not Resolved]
  - Inflammation [Not Recovered/Not Resolved]
  - Lymphadenopathy [Not Recovered/Not Resolved]
  - Pain in extremity [Not Recovered/Not Resolved]
  - Arthralgia [Not Recovered/Not Resolved]
  - Thyroid neoplasm [Not Recovered/Not Resolved]
  - Varicocele [Not Recovered/Not Resolved]
  - Pelvic floor dyssynergia [Not Recovered/Not Resolved]
  - Metabolic disorder [Not Recovered/Not Resolved]
  - Weight increased [Not Recovered/Not Resolved]
  - Muscle atrophy [Not Recovered/Not Resolved]
  - Bacterial prostatitis [Not Recovered/Not Resolved]
  - Sexual dysfunction [Not Recovered/Not Resolved]
  - Libido decreased [Not Recovered/Not Resolved]
  - Wrong technique in drug usage process [Not Recovered/Not Resolved]
